FAERS Safety Report 9034389 (Version 1)
Quarter: 2013Q1

REPORT INFORMATION
  Report Type: Spontaneous
  Country: US (occurrence: None)
  Receive Date: 20130116
  Receipt Date: 20130116
  Transmission Date: 20140127
  Serious: No
  Sender: FDA-Public Use
  Company Number: None

PATIENT
  Age: 46 Year
  Sex: Female
  Weight: 68.04 kg

DRUGS (1)
  1. ZYCLARA [Suspect]
     Indication: BASAL CELL CARCINOMA
     Dosage: USE FOR 5 DAYS AND Q 4 DAYS

REACTIONS (7)
  - Nausea [None]
  - Palpitations [None]
  - Rash [None]
  - Food allergy [None]
  - Amnesia [None]
  - Blindness [None]
  - Abnormal behaviour [None]
